FAERS Safety Report 4881978-9 (Version None)
Quarter: 2006Q1

REPORT INFORMATION
  Report Type: 
  Country: None (occurrence: None)
  Receive Date: 20060113
  Receipt Date: 20060113
  Transmission Date: 20060701
  Serious: Yes (Other)
  Sender: FDA-Public Use
  Company Number: None

PATIENT
  Age: 35 Year
  Sex: Male
  Weight: 86.6 kg

DRUGS (1)
  1. ZOSYN [Suspect]
     Indication: COLITIS ULCERATIVE
     Dosage: 3.375 GM Q 6 H IV
     Route: 042
     Dates: start: 20051227, end: 20051230

REACTIONS (1)
  - PANCYTOPENIA [None]
